FAERS Safety Report 7275098 (Version 4)
Quarter: 2014Q1

REPORT INFORMATION
  Report Type: Spontaneous
  Country: US (occurrence: US)
  Receive Date: 20100210
  Receipt Date: 20140317
  Transmission Date: 20141002
  Serious: Yes (Hospitalization, Other)
  Sender: FDA-Public Use
  Company Number: US-ELI_LILLY_AND_COMPANY-US200808005936

PATIENT
  Age: 36 Year
  Sex: Male

DRUGS (11)
  1. ZYPREXA ZYDIS [Suspect]
     Indication: SCHIZOPHRENIA
     Dosage: 7.5 MG, QD
     Route: 065
     Dates: start: 2001
  2. ZYPREXA ZYDIS [Suspect]
     Indication: HALLUCINATION
     Dosage: 10 MG, QD
     Route: 065
     Dates: start: 200302
  3. ZYPREXA ZYDIS [Suspect]
     Indication: PSYCHOTIC DISORDER
  4. ZYPREXA ZYDIS [Suspect]
     Indication: DELUSIONAL DISORDER, UNSPECIFIED TYPE
  5. ZYPREXA ZYDIS [Suspect]
     Indication: ABNORMAL BEHAVIOUR
  6. ZYPREXA ZYDIS [Suspect]
     Indication: DEPRESSION
  7. ZYPREXA [Suspect]
     Indication: DEMENTIA
     Dosage: 10 MG, QD
     Route: 065
     Dates: start: 2002, end: 2005
  8. RISPERIDONE [Concomitant]
     Dosage: 1 DF, UNKNOWN
  9. IBUPROFEN [Concomitant]
     Dosage: 1 DF, UNKNOWN
  10. PRAVASTATIN [Concomitant]
  11. BAYER ASPIRIN [Concomitant]

REACTIONS (25)
  - Gastritis [Not Recovered/Not Resolved]
  - Chest pain [Unknown]
  - Mental disorder [Recovered/Resolved]
  - Mental disorder [Recovered/Resolved]
  - Hyperkeratosis [Unknown]
  - Nausea [Unknown]
  - Pneumonia [Unknown]
  - Vomiting [Recovered/Resolved]
  - Eye disorder [Unknown]
  - Nausea [Unknown]
  - Hyperhidrosis [Recovered/Resolved]
  - Chest pain [Unknown]
  - Seasonal allergy [Unknown]
  - Psychotic disorder [Unknown]
  - Headache [Recovered/Resolved]
  - Abdominal pain [Recovered/Resolved]
  - Malaise [Unknown]
  - Skin disorder [Unknown]
  - Dermatitis allergic [Unknown]
  - Skin discolouration [Unknown]
  - Folliculitis [Unknown]
  - Cardiac disorder [Unknown]
  - Cardiac murmur [Unknown]
  - Weight increased [Unknown]
  - Dizziness [Recovered/Resolved]
